FAERS Safety Report 12691595 (Version 2)
Quarter: 2016Q3

REPORT INFORMATION
  Report Type: Spontaneous
  Country: US (occurrence: US)
  Receive Date: 20160826
  Receipt Date: 20160923
  Transmission Date: 20161109
  Serious: Yes (Other)
  Sender: FDA-Public Use
  Company Number: US-GLAXOSMITHKLINE-US2016121443

PATIENT
  Sex: Female

DRUGS (1)
  1. NUCALA [Suspect]
     Active Substance: MEPOLIZUMAB
     Indication: PRODUCT USED FOR UNKNOWN INDICATION
     Dosage: 100 MG, U
     Route: 058

REACTIONS (8)
  - Fatigue [Not Recovered/Not Resolved]
  - Injection site paraesthesia [Not Recovered/Not Resolved]
  - Hypoaesthesia [Unknown]
  - Headache [Not Recovered/Not Resolved]
  - Pain [Unknown]
  - Dry mouth [Not Recovered/Not Resolved]
  - Peripheral swelling [Recovered/Resolved]
  - Wheezing [Recovered/Resolved]
